FAERS Safety Report 6822122-8 (Version None)
Quarter: 2010Q3

REPORT INFORMATION
  Report Type: 
  Country: None (occurrence: None)
  Receive Date: 20100706
  Receipt Date: 20100706
  Transmission Date: 20110219
  Serious: Yes (Hospitalization)
  Sender: FDA-Public Use
  Company Number: None

PATIENT
  Age: 53 Year
  Sex: Female
  Weight: 53.5 kg

DRUGS (2)
  1. FERROUS SULFATE [Suspect]
     Indication: ANAEMIA
     Dosage: 325 MG BID PO
     Route: 048
     Dates: start: 20100311, end: 20100418
  2. HYDROCODONE BITARTRATE AND ACETAMINOPHEN [Suspect]
     Indication: PAIN
     Dosage: 1 TAB OTHER PO
     Route: 048
     Dates: start: 20100308, end: 20100428

REACTIONS (1)
  - SMALL INTESTINAL OBSTRUCTION [None]
